FAERS Safety Report 6094922-6 (Version None)
Quarter: 2009Q1

REPORT INFORMATION
  Report Type: 
  Country: None (occurrence: None)
  Receive Date: 20090227
  Receipt Date: 20090218
  Transmission Date: 20090719
  Serious: Yes (Hospitalization)
  Sender: FDA-Public Use
  Company Number: JP-JNJFOC-20080605255

PATIENT
  Sex: Female
  Weight: 51 kg

DRUGS (16)
  1. REMICADE [Suspect]
     Route: 042
  2. REMICADE [Suspect]
     Route: 042
  3. REMICADE [Suspect]
     Route: 042
  4. REMICADE [Suspect]
     Indication: RHEUMATOID ARTHRITIS
     Route: 042
  5. RHEUMATREX [Suspect]
     Indication: RHEUMATOID ARTHRITIS
     Route: 048
  6. PREDNISOLONE [Suspect]
     Indication: RHEUMATOID ARTHRITIS
     Route: 048
  7. LIPITOR [Concomitant]
     Indication: HYPERLIPIDAEMIA
     Route: 048
  8. CARFENIL [Concomitant]
     Indication: RHEUMATOID ARTHRITIS
     Route: 048
  9. VOLTAREN [Concomitant]
     Indication: LUMBAR SPINAL STENOSIS
     Route: 048
  10. BAKTAR [Concomitant]
     Indication: INFECTION PROPHYLAXIS
     Dosage: TUES. AND FRI. ONLY
     Route: 048
  11. SELBEX [Concomitant]
     Dosage: 2 PAC DAILY
     Route: 048
  12. PREDONINE [Concomitant]
     Route: 004
  13. MEROPEN [Concomitant]
  14. VONAFEC [Concomitant]
     Route: 054
  15. NAUZELIN [Concomitant]
     Route: 048
  16. ROCEPHIN [Concomitant]

REACTIONS (25)
  - BILIARY DILATATION [None]
  - BILIARY TRACT DISORDER [None]
  - CARBOHYDRATE ANTIGEN 125 INCREASED [None]
  - CONDITION AGGRAVATED [None]
  - DEPRESSED LEVEL OF CONSCIOUSNESS [None]
  - DILATATION INTRAHEPATIC DUCT ACQUIRED [None]
  - DISSEMINATED TUBERCULOSIS [None]
  - DISUSE SYNDROME [None]
  - DIVERTICULUM INTESTINAL [None]
  - GASTRITIS ATROPHIC [None]
  - GASTROENTERITIS VIBRIO [None]
  - HIATUS HERNIA [None]
  - MALIGNANT ASCITES [None]
  - METASTATIC NEOPLASM [None]
  - MUSCULOSKELETAL PAIN [None]
  - NO THERAPEUTIC RESPONSE [None]
  - OEDEMA PERIPHERAL [None]
  - PAIN IN EXTREMITY [None]
  - PERITONEAL EFFUSION [None]
  - PERITONEAL TUBERCULOSIS [None]
  - PERITONITIS [None]
  - PLEURAL EFFUSION [None]
  - PULMONARY TUBERCULOSIS [None]
  - TUBERCULOUS PLEURISY [None]
  - VASCULAR CALCIFICATION [None]
